FAERS Safety Report 6290824-0 (Version None)
Quarter: 2009Q3

REPORT INFORMATION
  Report Type: 
  Country: None (occurrence: None)
  Receive Date: 20090730
  Receipt Date: 20090727
  Transmission Date: 20100115
  Serious: Yes (Hospitalization, Other)
  Sender: FDA-Public Use
  Company Number: ES-ROXANE LABORATORIES, INC.-2009-RO-00750RO

PATIENT
  Age: 46 Year
  Sex: Male
  Weight: 80 kg

DRUGS (19)
  1. LIDOCAINE [Suspect]
     Indication: ANAESTHESIA
     Dosage: 2 ML
  2. LIDOCAINE [Suspect]
  3. DIAZEPAM [Suspect]
     Dosage: 10 MG
  4. MIDAZOLAM HCL [Suspect]
     Indication: PREMEDICATION
     Dosage: 2 MG
     Route: 042
  5. MIDAZOLAM HCL [Suspect]
     Indication: EPILEPSY
     Dosage: 2 MG
  6. PROTON PUMP INHIBITOR [Suspect]
  7. ORAL ANTIDIABETIC [Suspect]
     Route: 048
  8. SIMVASTATIN [Suspect]
     Dosage: 40 MG
  9. CLOPIDOGREL [Suspect]
     Dosage: 75 MG
  10. TRUVADA [Suspect]
     Indication: ANTIRETROVIRAL THERAPY
  11. VIRAMUNE [Suspect]
     Indication: ANTIRETROVIRAL THERAPY
     Dosage: 200 MG
  12. HEPARIN [Suspect]
     Indication: PROPHYLAXIS
  13. OXYMETAZOLINE HCL [Suspect]
     Indication: PREMEDICATION
  14. CLONAZEPAM [Suspect]
     Indication: EPILEPSY
  15. PHENYTOIN [Suspect]
     Indication: EPILEPSY
  16. SEVOFLURANE [Suspect]
     Indication: HYPNOTHERAPY
  17. PROPOFOL [Suspect]
     Indication: SEDATION
  18. OXYGEN [Concomitant]
     Indication: EPILEPSY
  19. FUROSEMIDE [Concomitant]
     Indication: PULMONARY OEDEMA

REACTIONS (6)
  - ACUTE PULMONARY OEDEMA [None]
  - DRUG INEFFECTIVE [None]
  - DRUG TOXICITY [None]
  - EPILEPSY [None]
  - OBSTRUCTIVE AIRWAYS DISORDER [None]
  - SINUS ARRHYTHMIA [None]
